FAERS Safety Report 10243121 (Version 1)
Quarter: 2014Q2

REPORT INFORMATION
  Report Type: Report from Study
  Country: JP (occurrence: None)
  Receive Date: 20140613
  Receipt Date: 20140613
  Transmission Date: 20141212
  Serious: Yes (Life-Threatening)
  Sender: FDA-Public Use
  Company Number: 2014TJP001959

PATIENT
  Age: 61 Year
  Sex: Female

DRUGS (5)
  1. ACTOS (PIOGLITAZONE HYDROCHLORIDE) [Suspect]
     Indication: TYPE 2 DIABETES MELLITUS
     Dosage: 1 D
     Route: 048
     Dates: start: 20100623
  2. HUMALOG MIX 50 (HUMALOG MIX) [Concomitant]
  3. AMARYL (GLIMEPIRIDE) [Concomitant]
  4. MICARDIS (TELMISARTAN) [Concomitant]
  5. AMLODIPINE BESILATE [Concomitant]

REACTIONS (1)
  - Breast cancer [None]
